FAERS Safety Report 16301296 (Version 3)
Quarter: 2019Q2

REPORT INFORMATION
  Report Type: Spontaneous
  Country: US (occurrence: US)
  Receive Date: 20190510
  Receipt Date: 20190628
  Transmission Date: 20190711
  Serious: No
  Sender: FDA-Public Use
  Company Number: US-ACTELION-A-NJ2019-189459

PATIENT
  Sex: Female
  Weight: 78.46 kg

DRUGS (4)
  1. TRACLEER [Suspect]
     Active Substance: BOSENTAN
     Indication: PULMONARY ARTERIAL HYPERTENSION
     Dosage: 125 MG, BID
     Route: 048
  2. ELIQUIS [Concomitant]
     Active Substance: APIXABAN
  3. SILDENAFIL CITRATE. [Concomitant]
     Active Substance: SILDENAFIL CITRATE
  4. REMODULIN [Concomitant]
     Active Substance: TREPROSTINIL
     Dosage: DECREASE 2 NG WEEKLY UNTIL SHE GETS TO 12 NG/KG/MIN

REACTIONS (14)
  - Catheter site pain [Unknown]
  - Blood potassium decreased [Recovering/Resolving]
  - Catheter site haemorrhage [Unknown]
  - Device dislocation [Unknown]
  - Gout [Unknown]
  - Fatigue [Unknown]
  - Rash [Unknown]
  - Skin depigmentation [Unknown]
  - Peripheral swelling [Unknown]
  - Dyspnoea exertional [Unknown]
  - Dyspnoea [Unknown]
  - Alopecia [Unknown]
  - Catheter site discolouration [Unknown]
  - Catheter site erythema [Unknown]
